FAERS Safety Report 9807884 (Version 2)
Quarter: 2014Q1

REPORT INFORMATION
  Report Type: Spontaneous
  Country: US (occurrence: US)
  Receive Date: 20140110
  Receipt Date: 20140313
  Transmission Date: 20141002
  Serious: Yes (Death)
  Sender: FDA-Public Use
  Company Number: US-FRI-1000052731

PATIENT
  Age: 77 Year
  Sex: Female
  Weight: 59.8 kg

DRUGS (17)
  1. TUDORZA PRESSAIR [Suspect]
     Indication: CHRONIC OBSTRUCTIVE PULMONARY DISEASE
     Dosage: 800 MCG
     Route: 055
     Dates: start: 20121228, end: 20130729
  2. TUDORZA PRESSAIR [Suspect]
     Route: 055
  3. ALBUTEROL SULFATE [Concomitant]
     Dosage: 0.63 MG/3 ML AS DIRECTED
     Route: 055
  4. ALBUTEROL HFA [Concomitant]
     Dosage: 2 PUFFS (90 MCG/ACTUATION) EVERY FOUR HOURS AS NEEDED
     Route: 055
     Dates: start: 20130611
  5. ANASTROZOLE [Concomitant]
     Dosage: 1 MG
     Route: 048
  6. COMBIVENT [Concomitant]
     Dosage: 1 PUFF (20-100 MCG/ACTUATION) 4 TIMES DAILY
     Route: 055
     Dates: start: 20131024
  7. DIGOXIN [Concomitant]
     Dosage: 125 MCG
     Route: 048
  8. DILTIAZEM [Concomitant]
     Dosage: 180 MG
     Route: 048
     Dates: start: 20131216
  9. DUONEB [Concomitant]
     Dosage: 0.5 MG- 3MG/3 ML FOUR TIMES DAILY
     Route: 055
     Dates: start: 20131031
  10. HYDROCHLOROTHIAZIDE [Concomitant]
     Dosage: 12.5 MG
     Route: 048
     Dates: start: 20130702
  11. KLOR-CON [Concomitant]
     Dosage: 8 MEQ EVERY OTHER DAY
     Route: 048
     Dates: start: 20131017
  12. LEVOTHYROXINE [Concomitant]
     Dosage: 25 MCG
     Route: 048
  13. OMEPRAZOLE [Concomitant]
     Dosage: 20 MG
     Route: 048
  14. PRADAXA [Concomitant]
     Dosage: 300 MG
     Route: 048
  15. PREDNISONE [Concomitant]
     Dosage: 40 MG
     Route: 048
     Dates: start: 20131216
  16. SPIRIVA [Concomitant]
     Dosage: 18 MCG
     Route: 055
  17. XARELTO [Concomitant]
     Dosage: 20 MG
     Route: 048
     Dates: start: 20131017

REACTIONS (3)
  - Cardiac arrest [Fatal]
  - Chronic obstructive pulmonary disease [Fatal]
  - Breast cancer [Fatal]
